FAERS Safety Report 9670633 (Version 1)
Quarter: 2013Q4

REPORT INFORMATION
  Report Type: Report from Study
  Country: US (occurrence: US)
  Receive Date: 20131106
  Receipt Date: 20131106
  Transmission Date: 20140711
  Serious: Yes (Death)
  Sender: FDA-Public Use
  Company Number: US-ROCHE-1293348

PATIENT
  Age: 56 Year
  Sex: Female
  Weight: 109 kg

DRUGS (6)
  1. AVASTIN [Suspect]
     Indication: HEPATOCELLULAR CARCINOMA
     Route: 042
     Dates: start: 20100120
  2. AVASTIN [Suspect]
     Indication: BRAIN NEOPLASM MALIGNANT
     Route: 042
     Dates: start: 20091223
  3. AVASTIN [Suspect]
     Route: 042
     Dates: start: 20091210
  4. TARCEVA [Concomitant]
     Route: 065
     Dates: start: 20100106, end: 20100128
  5. TARCEVA [Concomitant]
     Route: 065
     Dates: start: 20091210
  6. NEXAVAR [Concomitant]
     Route: 065
     Dates: start: 200904, end: 20091103

REACTIONS (12)
  - Death [Fatal]
  - Off label use [Unknown]
  - Fatigue [Unknown]
  - Dizziness [Unknown]
  - Decreased appetite [Unknown]
  - Weight decreased [Unknown]
  - Asthenia [Unknown]
  - Nodule [Unknown]
  - Abdominal pain upper [Unknown]
  - Respiratory tract congestion [Unknown]
  - Asthenia [Unknown]
  - Leukopenia [Unknown]
